FAERS Safety Report 9411895 (Version 1)
Quarter: 2013Q3

REPORT INFORMATION
  Report Type: Report from Study
  Country: AR (occurrence: AR)
  Receive Date: 20130722
  Receipt Date: 20130722
  Transmission Date: 20140515
  Serious: Yes (Hospitalization, Other)
  Sender: FDA-Public Use
  Company Number: PHHY2013AR077041

PATIENT
  Sex: Female

DRUGS (3)
  1. DIOVAN [Suspect]
     Indication: HYPERTENSION
     Dosage: 2 DF, DAILY
     Route: 048
  2. EXFORGE [Suspect]
     Indication: HYPERTENSION
     Dosage: UNK UKN, (160 MG VALSARTAN/UNKNOWN DOSE OF AMLODIPINE)
     Route: 048
  3. EXFORGE [Suspect]
     Dosage: 1 DF, (160 MG VALSARTAN/UNKNOWN DOSE OF AMLODIPINE)
     Route: 048

REACTIONS (4)
  - Accident [Recovering/Resolving]
  - Fall [Recovering/Resolving]
  - Spinal fracture [Recovering/Resolving]
  - Hypertension [Recovering/Resolving]
